FAERS Safety Report 7290364-6 (Version None)
Quarter: 2011Q1

REPORT INFORMATION
  Report Type: 
  Country: None (occurrence: None)
  Receive Date: 20110208
  Receipt Date: 20110208
  Transmission Date: 20110831
  Serious: Yes (Hospitalization)
  Sender: FDA-Public Use
  Company Number: None

PATIENT
  Age: 30 Year
  Sex: Male

DRUGS (1)
  1. NAFCILLIN [Suspect]
     Indication: BACTERAEMIA
     Dosage: 2GM Q4H IV DRIP
     Route: 041

REACTIONS (1)
  - CHOLESTASIS [None]
